FAERS Safety Report 9485691 (Version 1)
Quarter: 2013Q3

REPORT INFORMATION
  Report Type: Spontaneous
  Country: DE (occurrence: None)
  Receive Date: 20130822
  Receipt Date: 20130822
  Transmission Date: 20140515
  Serious: Yes (Hospitalization)
  Sender: FDA-Public Use
  Company Number: 1308-1062

PATIENT
  Age: 89 Year
  Sex: Female

DRUGS (2)
  1. EYLEA [Suspect]
     Indication: AGE-RELATED MACULAR DEGENERATION
     Dosage: INTRAOCULAR
     Route: 031
  2. WARFARIN (WARFARIN) [Concomitant]

REACTIONS (6)
  - Candida infection [None]
  - Bladder disorder [None]
  - Fall [None]
  - Dysgeusia [None]
  - Confusional state [None]
  - Unevaluable event [None]
